FAERS Safety Report 5374001-3 (Version None)
Quarter: 2007Q2

REPORT INFORMATION
  Report Type: 
  Country: None (occurrence: None)
  Receive Date: 20070628
  Receipt Date: 20070625
  Transmission Date: 20071010
  Serious: Yes (Disabling)
  Sender: FDA-Public Use
  Company Number: US-MERCK-0706USA04668

PATIENT
  Age: 81 Year
  Sex: Female

DRUGS (9)
  1. VYTORIN [Suspect]
     Indication: HYPERCHOLESTEROLAEMIA
     Route: 048
     Dates: start: 20070201, end: 20070401
  2. PROTONIX [Concomitant]
     Route: 065
  3. IMDUR [Concomitant]
     Route: 065
  4. PLAVIX [Concomitant]
     Route: 065
  5. SYNTHROID [Concomitant]
     Route: 065
  6. ASPIRIN [Concomitant]
     Route: 065
  7. METOPROLOL [Concomitant]
     Route: 065
  8. SPIRONOLACTONE [Concomitant]
     Route: 065
  9. POTASSIUM (UNSPECIFIED) [Concomitant]
     Route: 065

REACTIONS (2)
  - DYSSTASIA [None]
  - MYALGIA [None]
